FAERS Safety Report 24738897 (Version 1)
Quarter: 2024Q4

REPORT INFORMATION
  Report Type: Spontaneous
  Country: US (occurrence: US)
  Receive Date: 20241216
  Receipt Date: 20241216
  Transmission Date: 20250115
  Serious: Yes (Hospitalization)
  Sender: Kenvue
  Company Number: US-KENVUE-20241201540

PATIENT
  Sex: Male

DRUGS (1)
  1. NEOSPORIN [Suspect]
     Active Substance: BACITRACIN ZINC\NEOMYCIN SULFATE\POLYMYXIN B SULFATE
     Indication: Chemical burn
     Dosage: UNK UNK, SINGLE
     Route: 061
     Dates: start: 20230108

REACTIONS (10)
  - Dermatitis contact [Recovering/Resolving]
  - Application site inflammation [Recovering/Resolving]
  - Dysuria [Recovering/Resolving]
  - Chills [Recovering/Resolving]
  - Gait inability [Recovering/Resolving]
  - Deformity [Recovering/Resolving]
  - Emotional distress [Recovering/Resolving]
  - Discomfort [Recovering/Resolving]
  - Anxiety [Recovering/Resolving]
  - Product use in unapproved indication [Unknown]

NARRATIVE: CASE EVENT DATE: 20230108
